FAERS Safety Report 4457355-1 (Version None)
Quarter: 2004Q3

REPORT INFORMATION
  Report Type: 
  Country: None (occurrence: None)
  Receive Date: 20040922
  Receipt Date: 20040913
  Transmission Date: 20050211
  Serious: Yes (Death, Other)
  Sender: FDA-Public Use
  Company Number: US-JNJFOC-20040903511

PATIENT
  Age: 58 Year
  Sex: Female

DRUGS (4)
  1. ACETAMINOPHEN [Suspect]
     Indication: SUICIDE ATTEMPT
     Dosage: ASPIRIN+CAFFEINE (ANACIN)
     Route: 048
  2. ASPIRIN+CAFFEINE (ANACIN) [Suspect]
     Indication: SUICIDE ATTEMPT
     Dosage: ORAL
     Route: 048
  3. QUETIAPINE (QUETIAPINE) [Suspect]
     Indication: SUICIDE ATTEMPT
     Dosage: ORAL
     Route: 048
  4. SERTRALINE HYDROCHLORIDE [Suspect]
     Indication: SUICIDE ATTEMPT

REACTIONS (6)
  - BLOOD PH DECREASED [None]
  - CARDIAC ARREST [None]
  - HYPERHIDROSIS [None]
  - MENTAL IMPAIRMENT [None]
  - MULTIPLE DRUG OVERDOSE [None]
  - VOMITING [None]
